FAERS Safety Report 23722730 (Version 2)
Quarter: 2024Q2

REPORT INFORMATION
  Report Type: Spontaneous
  Country: US (occurrence: US)
  Receive Date: 20240409
  Receipt Date: 20240618
  Transmission Date: 20240716
  Serious: No
  Sender: FDA-Public Use
  Company Number: US-PFIZER INC-202400080628

PATIENT
  Age: 53 Year
  Sex: Female
  Weight: 43.09 kg

DRUGS (1)
  1. VORICONAZOLE [Suspect]
     Active Substance: VORICONAZOLE
     Indication: Aspergillus infection
     Dosage: 325 MG, 2X/DAY

REACTIONS (4)
  - Dysgeusia [Unknown]
  - Anxiety [Unknown]
  - Suspected counterfeit product [Unknown]
  - Off label use [Unknown]
